FAERS Safety Report 11983610 (Version 1)
Quarter: 2016Q1

REPORT INFORMATION
  Report Type: Spontaneous
  Country: US (occurrence: US)
  Receive Date: 20160201
  Receipt Date: 20160201
  Transmission Date: 20160526
  Serious: Yes (Other)
  Sender: FDA-Public Use
  Company Number: US-LPDUSPRD-20160030

PATIENT
  Age: 27 Year
  Sex: Female

DRUGS (12)
  1. DILTIAZEM HCL [Concomitant]
     Active Substance: DILTIAZEM HYDROCHLORIDE
     Dosage: 240 MG; 1 CAPSULE DAILY
     Route: 048
     Dates: start: 20150222
  2. DULCOLAX STOOL SOFTENER [Concomitant]
     Active Substance: DOCUSATE SODIUM
     Dosage: 100 MG; 1 CAPSULE DAILY
     Route: 048
  3. VENOFER [Suspect]
     Active Substance: IRON SUCROSE
     Dosage: 300 MG IN 100 ML NSS IN 30 MIN
     Route: 042
     Dates: start: 20150513, end: 20150513
  4. SODIUM BICARBONATE. [Concomitant]
     Active Substance: SODIUM BICARBONATE
     Dosage: 650 MG; 2 TAB 3 X/DAY
     Route: 048
     Dates: start: 20130302
  5. TRIMETHOPRIM. [Concomitant]
     Active Substance: TRIMETHOPRIM
     Dosage: 100 MG; 1 TABLET DAILY
     Route: 048
     Dates: start: 20130311
  6. TYLENOL ES TABS [Concomitant]
     Dosage: 1-2 TABS AS NEEDED
     Route: 048
  7. CARBAMAZEPINE ER [Concomitant]
     Active Substance: CARBAMAZEPINE
     Dosage: 100 MG 1 -2 TABS PER DAY
     Route: 048
     Dates: start: 20140512
  8. VITAMIN B12 [Concomitant]
     Active Substance: CYANOCOBALAMIN
     Dosage: 1000 MCG; 1 TABLET DAILY
     Route: 048
     Dates: start: 20150720
  9. ATORVASTATIN [Concomitant]
     Active Substance: ATORVASTATIN
     Dosage: 20 MG; 1 TABLET AT BEDTIME
     Route: 048
     Dates: start: 20150225
  10. CALCITRIOL. [Concomitant]
     Active Substance: CALCITRIOL
     Dosage: 0.5 MCG; 1 CAPSULE ONCE DAILY
     Route: 048
     Dates: start: 20140515
  11. MIRTAZAPINE. [Concomitant]
     Active Substance: MIRTAZAPINE
     Dosage: 45 MG; 1 TABLET AT BEDTIME
     Route: 048
  12. MELATONIN 3 [Concomitant]
     Dosage: 3 MG; 1 TABLET AT BEDTIME
     Route: 048

REACTIONS (5)
  - Urticaria [Unknown]
  - Oedema peripheral [Unknown]
  - Drug hypersensitivity [Unknown]
  - Pruritus [Unknown]
  - Off label use [Recovered/Resolved]

NARRATIVE: CASE EVENT DATE: 20150313
